FAERS Safety Report 24938195 (Version 1)
Quarter: 2025Q1

REPORT INFORMATION
  Report Type: Spontaneous
  Country: FR (occurrence: FR)
  Receive Date: 20250206
  Receipt Date: 20250206
  Transmission Date: 20250409
  Serious: Yes (Hospitalization)
  Sender: MYLAN
  Company Number: None

PATIENT
  Age: 84 Year
  Sex: Female
  Weight: 62 kg

DRUGS (39)
  1. CANDESARTAN [Suspect]
     Active Substance: CANDESARTAN
     Indication: Hypertension
     Dosage: 16 MILLIGRAM, QD
     Route: 048
     Dates: start: 20241224
  2. LOVENOX [Suspect]
     Active Substance: ENOXAPARIN SODIUM
     Indication: Thrombosis prophylaxis
     Dosage: 12000 INTERNATIONAL UNIT, QD (8A.M 8P.M)
     Route: 058
     Dates: start: 20241223, end: 20241227
  3. LOVENOX [Suspect]
     Active Substance: ENOXAPARIN SODIUM
     Dosage: 4000 INTERNATIONAL UNIT, QD (8A.M 8P.M)
     Route: 058
     Dates: start: 20241228, end: 20250101
  4. LOVENOX [Suspect]
     Active Substance: ENOXAPARIN SODIUM
     Dosage: 4000 INTERNATIONAL UNIT, QD
     Route: 058
     Dates: start: 20250101, end: 20250110
  5. NICARDIPINE HYDROCHLORIDE [Suspect]
     Active Substance: NICARDIPINE HYDROCHLORIDE
     Indication: Product used for unknown indication
     Dosage: 1440 MILLIGRAM, QD (60 MG /HOURS CONTINUOUSLY)
     Route: 042
     Dates: start: 20241224, end: 20241226
  6. NICARDIPINE HYDROCHLORIDE [Suspect]
     Active Substance: NICARDIPINE HYDROCHLORIDE
     Dosage: 80 MILLIGRAM, QD (20 MG EVERY 6 HOURS IF BP } 16/10)
     Route: 048
     Dates: start: 20241227, end: 20250105
  7. NICARDIPINE HYDROCHLORIDE [Suspect]
     Active Substance: NICARDIPINE HYDROCHLORIDE
     Dosage: 720 MILLIGRAM, QD (0.5MG/HOURS PREPARATION OF CONTINUOUS SHEAVE MEDICATIONS)
     Route: 042
     Dates: start: 20250105, end: 20250106
  8. LEVOFLOXACIN [Concomitant]
     Active Substance: LEVOFLOXACIN
     Indication: Staphylococcal bacteraemia
     Dosage: 750 MILLIGRAM, QD
     Route: 048
     Dates: start: 20250102, end: 20250102
  9. LEVOFLOXACIN [Concomitant]
     Active Substance: LEVOFLOXACIN
     Dosage: 750 MILLIGRAM, QD
     Route: 048
     Dates: start: 20250103, end: 20250105
  10. PIPERACILLIN SODIUM\TAZOBACTAM SODIUM [Concomitant]
     Active Substance: PIPERACILLIN SODIUM\TAZOBACTAM SODIUM
     Indication: Staphylococcal bacteraemia
     Dosage: 4 DOSAGE FORM, QD (4 G OVER 30 MIN EVERY 8 HOURS)
     Route: 042
     Dates: start: 20241224, end: 20241227
  11. RIFAMPIN [Concomitant]
     Active Substance: RIFAMPIN
     Indication: Staphylococcal bacteraemia
     Dosage: 600 MILLIGRAM, QD (2 CAPSULES OF 300 MG AT 6 A.M)
     Route: 048
     Dates: start: 20241229, end: 20250104
  12. VALPROATE SODIUM [Concomitant]
     Active Substance: VALPROATE SODIUM
     Indication: Product used for unknown indication
     Dosage: 750 MILLIGRAM, QD (250 MG MORNING NOON AND EVENING)
     Route: 048
     Dates: end: 20250104
  13. VALPROATE SODIUM [Concomitant]
     Active Substance: VALPROATE SODIUM
     Dosage: 500 MILLIGRAM, QD (250 MG MORNING AND EVENING)
     Route: 048
     Dates: start: 20250104, end: 20250105
  14. VALPROATE SODIUM [Concomitant]
     Active Substance: VALPROATE SODIUM
     Dosage: 750 MILLIGRAM, QD
     Route: 048
     Dates: start: 20250105
  15. OXAZEPAM [Concomitant]
     Active Substance: OXAZEPAM
     Indication: Agitation
     Dosage: 10 MILLIGRAM, QD
     Route: 048
     Dates: start: 20250109
  16. NORMACOL [Concomitant]
     Active Substance: HERBALS\KARAYA GUM
     Indication: Constipation
     Dosage: 1 DOSAGE FORM, QD
     Route: 054
     Dates: start: 20250106, end: 20250106
  17. CLINDAMYCIN [Concomitant]
     Active Substance: CLINDAMYCIN
     Indication: Staphylococcal bacteraemia
     Dosage: 1800 MILLIGRAM, QD (600 MG MORNING NOON AND EVENING)
     Route: 048
     Dates: start: 20250106, end: 20250116
  18. RISPERDAL [Concomitant]
     Active Substance: RISPERIDONE
     Indication: Product used for unknown indication
     Dosage: 1 MILLIGRAM, QD (0.25 MG EVERY +H)
     Route: 048
     Dates: start: 20250103, end: 20250104
  19. RISPERDAL [Concomitant]
     Active Substance: RISPERIDONE
     Dosage: 1.5 MILLIGRAM, QD (0.5 MG EVERY 8 HOURS)
     Route: 048
     Dates: start: 20250104
  20. CEFAZOLIN SODIUM [Concomitant]
     Active Substance: CEFAZOLIN SODIUM
     Indication: Staphylococcal bacteraemia
     Dosage: 6 GRAM, QD (6G / 24H CONTINUOUS)
     Route: 042
     Dates: start: 20241230
  21. CEFAZOLIN SODIUM [Concomitant]
     Active Substance: CEFAZOLIN SODIUM
     Dosage: 8 GRAM, QD (2 G OVER 30 MIN AT 12 A.M. 6 A.M. 12 P.M. AND 6 P.M.)
     Route: 042
     Dates: start: 20241228, end: 20241230
  22. CUBICIN [Concomitant]
     Active Substance: DAPTOMYCIN
     Indication: Staphylococcal bacteraemia
     Dosage: 300 MILLIGRAM, QD
     Route: 042
     Dates: start: 20241224, end: 20241226
  23. CUBICIN [Concomitant]
     Active Substance: DAPTOMYCIN
     Dosage: 700 MILLIGRAM, QD
     Route: 042
     Dates: start: 20241227, end: 20241227
  24. CUBICIN [Concomitant]
     Active Substance: DAPTOMYCIN
     Dosage: 350 MILLIGRAM, QD
     Route: 042
     Dates: start: 20250106, end: 20250106
  25. ONDANSETRON [Concomitant]
     Active Substance: ONDANSETRON
     Indication: Product used for unknown indication
     Dosage: 4 DOSAGE FORM, QD (1 AMPOULE EVERY 8 HOURS)
     Route: 042
     Dates: start: 20241224, end: 20241225
  26. FUNGIZONE [Concomitant]
     Active Substance: AMPHOTERICIN B
     Indication: Product used for unknown indication
     Dosage: 3 DOSAGE FORM, QD (1 TEASPOON MORNING, NOON AND EVENING)
     Route: 048
     Dates: start: 20241223, end: 20250101
  27. FUNGIZONE [Concomitant]
     Active Substance: AMPHOTERICIN B
     Dosage: 2 DOSAGE FORM, QD (1 TEASPOON MORNING AND EVENING)
     Route: 048
     Dates: start: 20250101, end: 20250104
  28. VENLAFAXINE [Concomitant]
     Active Substance: VENLAFAXINE HYDROCHLORIDE
     Indication: Depression
     Dosage: 75 MILLIGRAM, QD
     Route: 048
     Dates: start: 20250104
  29. VENLAFAXINE [Concomitant]
     Active Substance: VENLAFAXINE HYDROCHLORIDE
     Dosage: 150 MILLIGRAM, QD (2 CAPSULES IN THE MORNING)
     Route: 048
     Dates: end: 20250104
  30. VALSARTAN [Concomitant]
     Active Substance: VALSARTAN
     Route: 065
  31. ATENOLOL [Concomitant]
     Active Substance: ATENOLOL
     Route: 065
  32. POTASSIUM CHLORIDE [Concomitant]
     Active Substance: POTASSIUM CHLORIDE
     Route: 065
  33. PANTOPRAZOLE [Concomitant]
     Active Substance: PANTOPRAZOLE
     Route: 065
  34. IRON [Concomitant]
     Active Substance: IRON
     Route: 065
  35. TRAMADOL [Concomitant]
     Active Substance: TRAMADOL
     Route: 065
  36. TRAMADOL HYDROCHLORIDE [Concomitant]
     Active Substance: TRAMADOL HYDROCHLORIDE
     Route: 065
  37. TRAMADOL HYDROCHLORIDE [Concomitant]
     Active Substance: TRAMADOL HYDROCHLORIDE
     Route: 065
  38. Temesta [Concomitant]
     Route: 065
  39. LORAZEPAM [Concomitant]
     Active Substance: LORAZEPAM
     Route: 065

REACTIONS (1)
  - Petechiae [Recovering/Resolving]

NARRATIVE: CASE EVENT DATE: 20250104
